FAERS Safety Report 6834052-6 (Version None)
Quarter: 2010Q3

REPORT INFORMATION
  Report Type: 
  Country: None (occurrence: None)
  Receive Date: 20100712
  Receipt Date: 20070410
  Transmission Date: 20110219
  Serious: No
  Sender: FDA-Public Use
  Company Number: US-PFIZER INC-2007029940

PATIENT
  Sex: Male
  Weight: 96.62 kg

DRUGS (3)
  1. CHANTIX [Suspect]
     Indication: SMOKING CESSATION THERAPY
     Route: 048
     Dates: start: 20070405
  2. IBUPROFEN [Concomitant]
     Dates: start: 20070405
  3. CLARITHROMYCIN [Concomitant]
     Dates: start: 20070405

REACTIONS (3)
  - DYSGEUSIA [None]
  - NAUSEA [None]
  - PARAESTHESIA ORAL [None]
